FAERS Safety Report 9045249 (Version 4)
Quarter: 2013Q3

REPORT INFORMATION
  Report Type: Report from Study
  Country: PR (occurrence: PR)
  Receive Date: 20130131
  Receipt Date: 20130819
  Transmission Date: 20140515
  Serious: Yes (Hospitalization)
  Sender: FDA-Public Use
  Company Number: PR-ABBOTT-12P-131-0994610-00

PATIENT
  Age: 52 Year
  Sex: Female
  Weight: 79.9 kg

DRUGS (8)
  1. HUMIRA [Suspect]
     Indication: PUSTULAR PSORIASIS
     Route: 058
     Dates: start: 2007, end: 201212
  2. HUMIRA [Suspect]
     Route: 058
     Dates: start: 201303
  3. AVELOX [Suspect]
     Indication: PRODUCT USED FOR UNKNOWN INDICATION
     Dates: start: 2013, end: 2013
  4. SYNTHROID [Concomitant]
     Indication: THYROID DISORDER
     Route: 048
  5. NORVASC [Concomitant]
     Indication: HYPERTENSION
     Route: 048
  6. BUSPAR [Concomitant]
     Indication: DEPRESSION
     Route: 048
  7. PAXIL [Concomitant]
     Indication: DEPRESSION
     Route: 048
  8. AMBIEN [Concomitant]
     Indication: ANXIETY
     Dosage: 1 AT NIGHT TIME
     Route: 048

REACTIONS (6)
  - Ulcer [Recovered/Resolved]
  - Psoriasis [Recovered/Resolved]
  - Asthma [Not Recovered/Not Resolved]
  - Depression [Not Recovered/Not Resolved]
  - Anxiety [Not Recovered/Not Resolved]
  - Hypertension [Not Recovered/Not Resolved]
